FAERS Safety Report 5927498-1 (Version None)
Quarter: 2008Q4

REPORT INFORMATION
  Report Type: 
  Country: None (occurrence: None)
  Receive Date: 20081021
  Receipt Date: 20081021
  Transmission Date: 20090506
  Serious: No
  Sender: FDA-Public Use
  Company Number: None

PATIENT
  Sex: Female
  Weight: 115.9 kg

DRUGS (3)
  1. CARBOPLATIN [Suspect]
     Dosage: 450 MG
     Dates: end: 20080822
  2. TAXOTERE [Suspect]
     Dosage: 150 MG
     Dates: end: 20080822
  3. TAXOL [Suspect]
     Dosage: 100 MG
     Dates: end: 20080822

REACTIONS (1)
  - NEUTROPHIL COUNT DECREASED [None]
